FAERS Safety Report 25598127 (Version 1)
Quarter: 2025Q3

REPORT INFORMATION
  Report Type: Spontaneous
  Country: US (occurrence: US)
  Receive Date: 20250723
  Receipt Date: 20250723
  Transmission Date: 20251020
  Serious: Yes (Other)
  Sender: JUBILANT
  Company Number: None

PATIENT
  Age: 76 Year
  Sex: Male

DRUGS (1)
  1. PANTOPRAZOLE SODIUM [Suspect]
     Active Substance: PANTOPRAZOLE SODIUM
     Indication: Gastric antral vascular ectasia
     Dosage: 40 MG, ONCE PER DAY
     Route: 065

REACTIONS (2)
  - Gastric polyps [Unknown]
  - Gastric xanthoma [Unknown]
